FAERS Safety Report 5058232-8 (Version None)
Quarter: 2006Q2

REPORT INFORMATION
  Report Type: 
  Country: None (occurrence: None)
  Receive Date: 20060622
  Receipt Date: 20051206
  Transmission Date: 20061013
  Serious: Yes (Hospitalization)
  Sender: FDA-Public Use
  Company Number: US-JNJFOC-20051202141

PATIENT
  Age: 42 Year
  Sex: Male
  Weight: 82.5547 kg

DRUGS (4)
  1. DURAGESIC-100 [Suspect]
     Indication: PAIN
     Dosage: 75 UG/HR, 1 IN 72 HOUR, TRANSDERMAL
     Route: 062
     Dates: start: 20020101
  2. PREVACID (CAPSULE) LANSOPRAZOLE [Concomitant]
  3. LOTREL (TABLET) LOTREL [Concomitant]
  4. MOTRIN (TABLETS) IBUPROFEN [Concomitant]

REACTIONS (4)
  - APPLICATION SITE VESICLES [None]
  - CHEST PAIN [None]
  - CHEST X-RAY ABNORMAL [None]
  - THERAPEUTIC RESPONSE DECREASED [None]
